FAERS Safety Report 10759059 (Version 4)
Quarter: 2015Q2

REPORT INFORMATION
  Report Type: Spontaneous
  Country: US (occurrence: US)
  Receive Date: 20150203
  Receipt Date: 20150519
  Transmission Date: 20150821
  Serious: Yes (Life-Threatening, Hospitalization, Disabling)
  Sender: FDA-Public Use
  Company Number: US-BAYER-2015-016204

PATIENT
  Age: 25 Year
  Sex: Female
  Weight: 72.11 kg

DRUGS (2)
  1. MIRENA [Suspect]
     Active Substance: LEVONORGESTREL
     Indication: CONTRACEPTION
     Dosage: 20 MCG/24HR, CONT
     Route: 015
     Dates: start: 20090330, end: 20120613
  2. IBUPROFEN. [Concomitant]
     Active Substance: IBUPROFEN
     Dosage: 600 MG, UNK

REACTIONS (19)
  - Internal injury [None]
  - Depressed mood [None]
  - General physical health deterioration [None]
  - Uterine perforation [None]
  - Genital haemorrhage [None]
  - Pelvic pain [None]
  - Medical device discomfort [None]
  - Balance disorder [None]
  - Abdominal pain [None]
  - Anxiety [None]
  - Device issue [None]
  - Fear [None]
  - Emotional distress [None]
  - Injury [None]
  - Depression [None]
  - Anhedonia [None]
  - Anger [None]
  - Headache [None]
  - Procedural pain [None]

NARRATIVE: CASE EVENT DATE: 200904
